FAERS Safety Report 23882463 (Version 1)
Quarter: 2024Q2

REPORT INFORMATION
  Report Type: Spontaneous
  Country: US (occurrence: US)
  Receive Date: 20240522
  Receipt Date: 20240522
  Transmission Date: 20240716
  Serious: No
  Sender: FDA-Public Use
  Company Number: US-UNITED THERAPEUTICS-UNT-2024-014666

PATIENT
  Sex: Male

DRUGS (2)
  1. REMODULIN [Suspect]
     Active Substance: TREPROSTINIL
     Indication: Heritable pulmonary arterial hypertension
     Dosage: UNK, CONTINUING
     Route: 041
  2. AMBRISENTAN [Concomitant]
     Active Substance: AMBRISENTAN
     Indication: Heritable pulmonary arterial hypertension
     Dosage: UNK, QD (1 PILL, DAILY)
     Route: 048

REACTIONS (4)
  - Blood pressure decreased [Unknown]
  - Fluid retention [Unknown]
  - Asthenia [Unknown]
  - Fatigue [Unknown]
